FAERS Safety Report 9929270 (Version 2)
Quarter: 2014Q1

REPORT INFORMATION
  Report Type: Spontaneous
  Country: US (occurrence: US)
  Receive Date: 20140227
  Receipt Date: 20140304
  Transmission Date: 20141002
  Serious: No
  Sender: FDA-Public Use
  Company Number: US-ABBVIE-14P-163-1206384-00

PATIENT
  Age: 51 Year
  Sex: Female

DRUGS (2)
  1. SYNTHROID [Suspect]
     Indication: AUTOIMMUNE THYROIDITIS
     Dosage: ONE AND A HALF TABLETS TO EQUAL 75MCG/DAY.
     Dates: start: 2013
  2. SYNTHROID [Suspect]
     Dosage: TWO AND A QUARTER TABLETS TO EQUAL 112.5 MCG PER DAY
     Dates: start: 2013

REACTIONS (8)
  - Body temperature decreased [Not Recovered/Not Resolved]
  - Drug ineffective [Not Recovered/Not Resolved]
  - Hypothyroidism [Not Recovered/Not Resolved]
  - Expired drug administered [Unknown]
  - Fatigue [Not Recovered/Not Resolved]
  - Constipation [Not Recovered/Not Resolved]
  - Weight increased [Not Recovered/Not Resolved]
  - Drug ineffective [Not Recovered/Not Resolved]
